FAERS Safety Report 8725726 (Version 2)
Quarter: 2013Q1

REPORT INFORMATION
  Report Type: Spontaneous
  Country: US (occurrence: US)
  Receive Date: 20120816
  Receipt Date: 20130215
  Transmission Date: 20140127
  Serious: No
  Sender: FDA-Public Use
  Company Number: US-009507513-1208USA003066

PATIENT
  Sex: Female

DRUGS (1)
  1. COPPERTONE SPORT SUNSCREEN SPF 80 [Suspect]
     Indication: PRODUCT USED FOR UNKNOWN INDICATION
     Dosage: UNK, ONCE
     Route: 061

REACTIONS (1)
  - Skin discolouration [Unknown]
